FAERS Safety Report 7949344-7 (Version None)
Quarter: 2011Q4

REPORT INFORMATION
  Report Type: 
  Country: None (occurrence: None)
  Receive Date: 20111125
  Receipt Date: 20111104
  Transmission Date: 20120403
  Serious: Yes (Life-Threatening, Hospitalization)
  Sender: FDA-Public Use
  Company Number: 2011SP003743

PATIENT
  Sex: Female

DRUGS (4)
  1. REMERON [Concomitant]
  2. COGENTIN [Concomitant]
  3. TRAZODONE HCL [Concomitant]
  4. LATUDA [Suspect]
     Indication: SCHIZOAFFECTIVE DISORDER
     Dosage: 40 MG;QD;ORAL
     Route: 048
     Dates: start: 20110101, end: 20110101

REACTIONS (5)
  - HYPERVENTILATION [None]
  - CONVULSION [None]
  - LOSS OF CONSCIOUSNESS [None]
  - TREATMENT NONCOMPLIANCE [None]
  - PANIC ATTACK [None]
